FAERS Safety Report 8803773 (Version 3)
Quarter: 2012Q4

REPORT INFORMATION
  Report Type: 
  Country: US (occurrence: US)
  Receive Date: 20120924
  Receipt Date: 20121114
  Transmission Date: 20130627
  Serious: Yes (Hospitalization, Other)
  Sender: FDA-Public Use
  Company Number: US-PFIZER INC-2012231968

PATIENT
  Age: 75 Year
  Sex: Female
  Weight: 58.96 kg

DRUGS (9)
  1. ZYVOX [Suspect]
     Indication: BACTERIAL INFECTION
     Dosage: 600 mg, 2x/day
     Route: 048
     Dates: start: 20120807, end: 20120814
  2. CELEXA [Concomitant]
     Dosage: 10 mg, daily
  3. HEPARIN [Concomitant]
     Dosage: 5000 units every 8 hours
     Route: 058
  4. ACETAMINOPHEN [Concomitant]
  5. DULCOLAX [Concomitant]
  6. NEURONTIN [Concomitant]
  7. DILAUDID [Concomitant]
  8. ZOFRAN [Concomitant]
  9. RESTORIL [Concomitant]

REACTIONS (3)
  - Drug ineffective [Unknown]
  - Thrombocytopenia [Unknown]
  - Pyrexia [Unknown]
